FAERS Safety Report 9158345 (Version 1)
Quarter: 2013Q1

REPORT INFORMATION
  Report Type: Spontaneous
  Country: SE (occurrence: None)
  Receive Date: 20130211
  Receipt Date: 20130211
  Transmission Date: 20140127
  Serious: Yes (Life-Threatening, Hospitalization, Other)
  Sender: FDA-Public Use
  Company Number: 2013P1001933

PATIENT
  Sex: 0

DRUGS (1)
  1. LITHIUM [Suspect]
     Indication: DEPRESSION

REACTIONS (2)
  - Suicide attempt [None]
  - Toxicity to various agents [None]
